FAERS Safety Report 16117395 (Version 1)
Quarter: 2019Q1

REPORT INFORMATION
  Report Type: Spontaneous
  Country: CZ (occurrence: CZ)
  Receive Date: 20190326
  Receipt Date: 20190326
  Transmission Date: 20190418
  Serious: Yes (Hospitalization)
  Sender: FDA-Public Use
  Company Number: CZ-ACCORD-115016

PATIENT
  Age: 69 Year
  Sex: Male

DRUGS (6)
  1. QUETIAPINE. [Suspect]
     Active Substance: QUETIAPINE
     Indication: PARANOIA
     Dosage: 25-75 MG
  2. OLANZAPINE. [Suspect]
     Active Substance: OLANZAPINE
     Indication: ABNORMAL BEHAVIOUR
     Dosage: 2.5-5 MG
  3. TIAPRIDE [Suspect]
     Active Substance: TIAPRIDE
     Indication: ABNORMAL BEHAVIOUR
     Dosage: 100-200 MG
  4. RIVASTIGMINE/RIVASTIGMINE TARTRATE [Concomitant]
     Indication: DEMENTIA
     Dosage: TITRATED TO A MAXIMUM THERAPEUTIC DOSE
  5. LEVODOPA [Concomitant]
     Active Substance: LEVODOPA
     Indication: PARKINSONISM
  6. ESCITALOPRAM [Concomitant]
     Active Substance: ESCITALOPRAM OXALATE
     Indication: ANXIETY

REACTIONS (3)
  - Extrapyramidal disorder [Not Recovered/Not Resolved]
  - Drug ineffective [Unknown]
  - Gait disturbance [Not Recovered/Not Resolved]

NARRATIVE: CASE EVENT DATE: 2012
